FAERS Safety Report 7212681-8 (Version None)
Quarter: 2011Q1

REPORT INFORMATION
  Report Type: 
  Country: None (occurrence: None)
  Receive Date: 20110106
  Receipt Date: 20110104
  Transmission Date: 20110831
  Serious: Yes (Hospitalization, Other)
  Sender: FDA-Public Use
  Company Number: KR-JNJFOC-20091200888

PATIENT
  Sex: Male

DRUGS (3)
  1. CHLORPROMAZINE [Suspect]
     Indication: ILL-DEFINED DISORDER
     Route: 065
  2. HALOPERIDOL [Suspect]
     Indication: ILL-DEFINED DISORDER
     Route: 065
  3. SULPIRIDE [Suspect]
     Indication: ILL-DEFINED DISORDER
     Route: 065

REACTIONS (3)
  - PSYCHOTIC DISORDER [None]
  - SUICIDE ATTEMPT [None]
  - AGGRESSION [None]
